FAERS Safety Report 25420178 (Version 4)
Quarter: 2025Q4

REPORT INFORMATION
  Report Type: Report from Study
  Country: EU (occurrence: EU)
  Receive Date: 20250610
  Receipt Date: 20251208
  Transmission Date: 20260117
  Serious: Yes (Hospitalization, Other)
  Sender: ABBVIE
  Company Number: EU-ABBVIE-6318561

PATIENT
  Sex: Male

DRUGS (1)
  1. FOSCARBIDOPA\FOSLEVODOPA [Suspect]
     Active Substance: FOSCARBIDOPA\FOSLEVODOPA
     Indication: Parkinson^s disease
     Dosage: CRN: 0.22 ML/H, CR: 0.26 ML/H, CRH: 0.28 ML/H, ED: 0.10ML
     Route: 058
     Dates: start: 20241113

REACTIONS (2)
  - Spinal fracture [Not Recovered/Not Resolved]
  - Movement disorder [Not Recovered/Not Resolved]
